FAERS Safety Report 8427448-2 (Version None)
Quarter: 2012Q2

REPORT INFORMATION
  Report Type: 
  Country: None (occurrence: None)
  Receive Date: 20120611
  Receipt Date: 20120601
  Transmission Date: 20120825
  Serious: Yes (Hospitalization, Other)
  Sender: FDA-Public Use
  Company Number: US-MYLANLABS-2012S1011273

PATIENT
  Age: 57 Year
  Sex: Female

DRUGS (3)
  1. MUCINEX [Concomitant]
  2. CLOZAPINE [Suspect]
     Indication: SCHIZOPHRENIA
     Route: 048
     Dates: end: 20120524
  3. PAXIL [Concomitant]

REACTIONS (2)
  - ILEUS PARALYTIC [None]
  - APPENDICITIS [None]
